FAERS Safety Report 4860394-X (Version None)
Quarter: 2005Q4

REPORT INFORMATION
  Report Type: 
  Country: None (occurrence: None)
  Receive Date: 20051219
  Receipt Date: 20051209
  Transmission Date: 20060501
  Serious: Yes (Other)
  Sender: FDA-Public Use
  Company Number: CA-BRISTOL-MYERS SQUIBB COMPANY-13218839

PATIENT
  Age: 63 Year
  Sex: Female

DRUGS (8)
  1. TEQUIN [Suspect]
     Route: 048
  2. HYDROCHLOROTHIAZIDE [Concomitant]
     Route: 048
  3. METOPROLOL [Concomitant]
     Route: 048
  4. PREDNISONE TAB [Concomitant]
     Route: 048
  5. SODIUM BICARBONATE [Concomitant]
     Route: 048
  6. SYMBICORT [Concomitant]
  7. TYLENOL W/ CODEINE NO. 3 [Concomitant]
  8. ZESTRIL [Concomitant]
     Route: 048

REACTIONS (10)
  - BLOOD CREATININE [None]
  - CONVULSION [None]
  - HYPERGLYCAEMIA [None]
  - HYPERKALAEMIA [None]
  - HYPEROSMOLAR STATE [None]
  - HYPOTENSION [None]
  - LACTIC ACIDOSIS [None]
  - LOSS OF CONSCIOUSNESS [None]
  - METABOLIC ACIDOSIS [None]
  - RESPIRATORY FAILURE [None]
